FAERS Safety Report 9252152 (Version 1)
Quarter: 2013Q1

REPORT INFORMATION
  Report Type: Spontaneous
  Country: US (occurrence: None)
  Receive Date: 20130305
  Receipt Date: 20130305
  Transmission Date: 20140127
  Serious: Yes (Hospitalization)
  Sender: FDA-Public Use
  Company Number: 163-21880-12090971

PATIENT
  Age: 65 Year
  Sex: Male
  Weight: 78.91 kg

DRUGS (17)
  1. REVLIMID [Suspect]
     Indication: PLASMA CELL MYELOMA
     Dosage: 01/16/2012 - 07/08/2012, CAPSULE, 25 MG, 14 IN 14 D, PO
  2. DEXAMETHASONE [Suspect]
     Dosage: 01/16/2012 - 07/07/2012, CAPSULE, 20 MG, DAYS 1, 2, 4, 5, 8, 9, 11 AND 12, PO
  3. VELCADE [Suspect]
  4. ASPIRIN (ACETYLSALICYLIC ACID) [Concomitant]
  5. ACYCLOVIR (ACICLOVIR) [Concomitant]
  6. SIMVASTATIN (SIMVASTATIN) [Concomitant]
  7. FLOMAX (TAMSULOSIN HYDROCHLORIDE) [Concomitant]
  8. OMEPRAZOLE (OMEPRAZOLE) [Concomitant]
  9. VITAMIN D (ERGOCALCIFEROL) [Concomitant]
  10. LEVOFLOXACIN (LEVOFLOXACIN) [Concomitant]
  11. GENTAMICIN (GENTAMICIN) [Concomitant]
  12. VANCOMYCIN (VANCOMYCIN) [Concomitant]
  13. IMIPENEM (IMIPENEM) [Concomitant]
  14. FLUIDS [Concomitant]
  15. BOLUS [Concomitant]
  16. HEPARIN (HEPARIN) [Concomitant]
  17. CEFTAZIDIME (CEFTAZIDIME) [Concomitant]

REACTIONS (3)
  - Pyrexia [None]
  - Fatigue [None]
  - Malaise [None]
